FAERS Safety Report 12470050 (Version 1)
Quarter: 2016Q2

REPORT INFORMATION
  Report Type: Report from Study
  Country: IQ (occurrence: IQ)
  Receive Date: 20160616
  Receipt Date: 20160616
  Transmission Date: 20160815
  Serious: Yes (Other)
  Sender: FDA-Public Use
  Company Number: PHHY2015IQ161496

PATIENT
  Sex: Male

DRUGS (1)
  1. GLIVEC [Suspect]
     Active Substance: IMATINIB MESYLATE
     Indication: CHRONIC MYELOID LEUKAEMIA
     Dosage: 400 MG, QD
     Route: 048
     Dates: start: 201511

REACTIONS (5)
  - Back pain [Not Recovered/Not Resolved]
  - Renal disorder [Not Recovered/Not Resolved]
  - Myalgia [Unknown]
  - Arthralgia [Not Recovered/Not Resolved]
  - Nephrolithiasis [Unknown]
